FAERS Safety Report 19162259 (Version 4)
Quarter: 2022Q2

REPORT INFORMATION
  Report Type: Other
  Country: FR (occurrence: None)
  Receive Date: 20210421
  Receipt Date: 20220408
  Transmission Date: 20220721
  Serious: Yes (Hospitalization)
  Sender: FDA-Public Use
  Company Number: FR-ROCHE-2477942

PATIENT
  Age: 72 Year
  Sex: Male
  Weight: 67 kg

DRUGS (17)
  1. ATEZOLIZUMAB [Suspect]
     Active Substance: ATEZOLIZUMAB
     Indication: Non-small cell lung cancer
     Dosage: ON 16/AUG/2019 RECEIVED MOST RECENT DOSE OF ATEZOLIZUMAB 1200 MG
     Route: 041
     Dates: start: 20190726
  2. AMLODIPINE BESYLATE [Concomitant]
     Active Substance: AMLODIPINE BESYLATE
  3. HERBALS\SAW PALMETTO [Concomitant]
     Active Substance: HERBALS\SAW PALMETTO
     Indication: Nocturia
  4. TAMSULOSIN HYDROCHLORIDE [Concomitant]
     Active Substance: TAMSULOSIN HYDROCHLORIDE
     Indication: Nocturia
     Dates: start: 20190726
  5. OXYCODONE HYDROCHLORIDE [Concomitant]
     Active Substance: OXYCODONE HYDROCHLORIDE
     Indication: Pain
  6. DALTEPARIN SODIUM [Concomitant]
     Active Substance: DALTEPARIN SODIUM
     Indication: Prophylaxis
     Dates: start: 201909, end: 201909
  7. DOLIPRANE [Concomitant]
     Active Substance: ACETAMINOPHEN
     Dosage: PRN
     Dates: start: 20190919
  8. LANSOPRAZOLE [Concomitant]
     Active Substance: LANSOPRAZOLE
     Indication: Prophylaxis
     Dates: start: 20191002
  9. LEVETIRACETAM [Concomitant]
     Active Substance: LEVETIRACETAM
     Dates: start: 20191002
  10. AUGMENTIN [Concomitant]
     Active Substance: AMOXICILLIN\CLAVULANATE POTASSIUM
     Dates: start: 20191004
  11. CEFTRIAXONE SODIUM [Concomitant]
     Active Substance: CEFTRIAXONE SODIUM
     Dates: start: 20191009
  12. SPIRAMYCIN [Concomitant]
     Active Substance: SPIRAMYCIN
     Dates: start: 20191009
  13. POTASSIUM CHLORIDE [Concomitant]
     Active Substance: POTASSIUM CHLORIDE
     Dates: start: 20190919
  14. SACCHAROMYCES CEREVISIAE [Concomitant]
     Active Substance: SACCHAROMYCES CEREVISIAE
  15. PACLITAXEL [Concomitant]
     Active Substance: PACLITAXEL
  16. CARBOPLATIN [Concomitant]
     Active Substance: CARBOPLATIN
  17. OXYGEN [Concomitant]
     Active Substance: OXYGEN

REACTIONS (6)
  - Brain neoplasm [Recovered/Resolved with Sequelae]
  - Steroid diabetes [Unknown]
  - Hyperglycaemia [Not Recovered/Not Resolved]
  - Hypovolaemia [Recovered/Resolved]
  - Hypoxia [Unknown]
  - Sepsis [Not Recovered/Not Resolved]

NARRATIVE: CASE EVENT DATE: 20190909
